FAERS Safety Report 21103542 (Version 1)
Quarter: 2022Q3

REPORT INFORMATION
  Report Type: Spontaneous
  Country: US (occurrence: US)
  Receive Date: 20220720
  Receipt Date: 20220720
  Transmission Date: 20221026
  Serious: No
  Sender: FDA-Public Use
  Company Number: US-BRISTOL-MYERS SQUIBB COMPANY-2022-066397

PATIENT
  Age: 66 Year
  Sex: Female

DRUGS (1)
  1. REVLIMID [Suspect]
     Active Substance: LENALIDOMIDE
     Indication: Plasma cell myeloma
     Dosage: TAKE 1 CAPSULE (25 MG TOTAL) BY MOUTH NIGHTLY ON DAYS 1-21 OF EACH 28 DAY CYCLE (3 WEEKS ON THEN 1WE
     Route: 048
     Dates: start: 20220520

REACTIONS (2)
  - Liver disorder [Unknown]
  - Chills [Unknown]
